FAERS Safety Report 7560175-2 (Version None)
Quarter: 2011Q2

REPORT INFORMATION
  Report Type: 
  Country: None (occurrence: None)
  Receive Date: 20110621
  Receipt Date: 20110614
  Transmission Date: 20111010
  Serious: Yes (Other)
  Sender: FDA-Public Use
  Company Number: A0931476A

PATIENT
  Age: 55 Year
  Sex: Male

DRUGS (7)
  1. NORCO [Concomitant]
  2. FLEXERIL [Concomitant]
  3. FLONASE [Concomitant]
  4. XANAX [Concomitant]
  5. LOVAZA [Suspect]
     Dosage: 2CAP TWICE PER DAY
     Route: 048
     Dates: start: 20091201
  6. ZYRTEC [Concomitant]
  7. VITAMIN D SUPPLEMENT [Concomitant]

REACTIONS (1)
  - HYPERCALCIURIA [None]
